FAERS Safety Report 5338561-0 (Version None)
Quarter: 2007Q2

REPORT INFORMATION
  Report Type: 
  Country: None (occurrence: None)
  Receive Date: 20070322
  Receipt Date: 20060213
  Transmission Date: 20071010
  Serious: Yes (Other)
  Sender: FDA-Public Use
  Company Number: 200610164BCC

PATIENT
  Age: 85 Year
  Sex: Male
  Weight: 82.5547 kg

DRUGS (4)
  1. ALEVE [Suspect]
     Indication: ARTHRITIS
     Dosage: 220 MG, ONCE, ORAL
     Route: 048
     Dates: start: 20060108
  2. TOPROL-XL [Concomitant]
  3. AMARYL [Concomitant]
  4. LESCOL [Concomitant]

REACTIONS (2)
  - BLOOD URINE PRESENT [None]
  - HAEMATOCHEZIA [None]
